FAERS Safety Report 6890335-5 (Version None)
Quarter: 2010Q3

REPORT INFORMATION
  Report Type: 
  Country: None (occurrence: None)
  Receive Date: 20100730
  Receipt Date: 20080926
  Transmission Date: 20110219
  Serious: No
  Sender: FDA-Public Use
  Company Number: US-PFIZER INC-2008081691

PATIENT
  Sex: Female
  Weight: 63.636 kg

DRUGS (3)
  1. LIPITOR [Suspect]
     Indication: BLOOD CHOLESTEROL INCREASED
     Dates: end: 20080901
  2. ACTONEL [Concomitant]
     Indication: OSTEOPOROSIS
  3. SYNTHROID [Concomitant]
     Indication: THYROID DISORDER

REACTIONS (1)
  - HEPATIC ENZYME ABNORMAL [None]
